FAERS Safety Report 4752380-5 (Version None)
Quarter: 2005Q3

REPORT INFORMATION
  Report Type: 
  Country: None (occurrence: None)
  Receive Date: 20050823
  Receipt Date: 20050811
  Transmission Date: 20060218
  Serious: Yes (Hospitalization)
  Sender: FDA-Public Use
  Company Number: 2005112248

PATIENT
  Age: 39 Year
  Sex: Female

DRUGS (4)
  1. ALDACTONE [Suspect]
     Indication: ILL-DEFINED DISORDER
     Dosage: SEE IMAGE
     Route: 048
     Dates: start: 20050616
  2. RIFADIN [Suspect]
     Indication: ILL-DEFINED DISORDER
     Dosage: 600 MG (300 MG, EVERY DAY), ORAL
     Route: 048
     Dates: start: 20050428
  3. ISONIAZID [Concomitant]
  4. HUMIRA [Concomitant]

REACTIONS (5)
  - ASTHENIA [None]
  - DRUG INTERACTION [None]
  - DYSPNOEA EXERTIONAL [None]
  - HYPOKALAEMIA [None]
  - PALPITATIONS [None]
